FAERS Safety Report 21810770 (Version 1)
Quarter: 2023Q1

REPORT INFORMATION
  Report Type: Spontaneous
  Country: US (occurrence: US)
  Receive Date: 20230103
  Receipt Date: 20230103
  Transmission Date: 20230418
  Serious: No
  Sender: FDA-Public Use
  Company Number: US-ELI_LILLY_AND_COMPANY-US202212007715

PATIENT
  Age: 52 Year
  Sex: Female

DRUGS (1)
  1. MOUNJARO [Suspect]
     Active Substance: TIRZEPATIDE
     Indication: Weight decreased
     Dosage: 10 MG, UNKNOWN
     Route: 058

REACTIONS (2)
  - Injury associated with device [Unknown]
  - Off label use [Unknown]

NARRATIVE: CASE EVENT DATE: 20221212
